FAERS Safety Report 7009875-3 (Version None)
Quarter: 2010Q3

REPORT INFORMATION
  Report Type: 
  Country: None (occurrence: None)
  Receive Date: 20100903
  Receipt Date: 20100819
  Transmission Date: 20110219
  Serious: No
  Sender: FDA-Public Use
  Company Number: 2010-00640

PATIENT
  Age: 44 Year
  Sex: Male
  Weight: 77.1115 kg

DRUGS (3)
  1. ZICAM COLD REMEDY GEL SWABS [Suspect]
     Dosage: QID X 14 DAYS
     Dates: start: 20090501, end: 20090515
  2. LISINOPRIL [Concomitant]
  3. TOPROL-XL [Concomitant]

REACTIONS (1)
  - ANOSMIA [None]
